FAERS Safety Report 8927994 (Version 1)
Quarter: 2012Q4

REPORT INFORMATION
  Report Type: Spontaneous
  Country: US (occurrence: None)
  Receive Date: 20121126
  Receipt Date: 20121126
  Transmission Date: 20130627
  Serious: Yes (Hospitalization, Other)
  Sender: FDA-Public Use
  Company Number: None

PATIENT
  Age: 63 Year
  Sex: Male
  Weight: 117.94 kg

DRUGS (1)
  1. CLOPIDIGREL [Suspect]
     Indication: OBSTRUCTION
     Route: 048
     Dates: start: 20120701, end: 20121118

REACTIONS (3)
  - Anxiety [None]
  - Tunnel vision [None]
  - Vertebral artery occlusion [None]
